FAERS Safety Report 5028548-X (Version None)
Quarter: 2006Q2

REPORT INFORMATION
  Report Type: 
  Country: None (occurrence: None)
  Receive Date: 20060616
  Receipt Date: 20060616
  Transmission Date: 20061013
  Serious: No
  Sender: FDA-Public Use
  Company Number: None

PATIENT
  Sex: Female

DRUGS (2)
  1. PERCOCET [Suspect]
  2. DURAGESIC-100 [Suspect]
     Dosage: ONE EVERY 72 HRS

REACTIONS (1)
  - DRUG INEFFECTIVE [None]
